FAERS Safety Report 6038648-3 (Version None)
Quarter: 2009Q1

REPORT INFORMATION
  Report Type: 
  Country: None (occurrence: None)
  Receive Date: 20090115
  Receipt Date: 20080902
  Transmission Date: 20090719
  Serious: No
  Sender: FDA-Public Use
  Company Number: US-BAYER-200813632BCC

PATIENT
  Sex: Male
  Weight: 84 kg

DRUGS (1)
  1. ALEVE (CAPLET) [Suspect]
     Indication: INTERVERTEBRAL DISC PROTRUSION
     Dosage: TOTAL DAILY DOSE: 660 MG  UNIT DOSE: 220 MG
     Dates: start: 20080902

REACTIONS (1)
  - HERNIA PAIN [None]
